FAERS Safety Report 8571663-4 (Version None)
Quarter: 2012Q3

REPORT INFORMATION
  Report Type: 
  Country: None (occurrence: None)
  Receive Date: 20120806
  Receipt Date: 20120725
  Transmission Date: 20120928
  Serious: Yes (Other)
  Sender: FDA-Public Use
  Company Number: CA-JNJFOC-20120102557

PATIENT
  Sex: Female
  Weight: 45.3 kg

DRUGS (4)
  1. METHOTREXATE [Concomitant]
     Route: 058
  2. REMICADE [Suspect]
     Indication: RHEUMATOID ARTHRITIS
     Route: 042
  3. REMICADE [Suspect]
     Route: 042
     Dates: start: 20110125, end: 20111230
  4. PREDNISONE [Concomitant]
     Dosage: 7 MG/5 MG ALTERNATING DAYS (DAILY)
     Route: 048

REACTIONS (4)
  - PYREXIA [None]
  - DYSPNOEA [None]
  - CEREBROVASCULAR ACCIDENT [None]
  - BLINDNESS [None]
